FAERS Safety Report 4419947-5 (Version None)
Quarter: 2004Q3

REPORT INFORMATION
  Report Type: 
  Country: None (occurrence: None)
  Receive Date: 20040804
  Receipt Date: 20040721
  Transmission Date: 20050211
  Serious: Yes (Other)
  Sender: FDA-Public Use
  Company Number: 200410405BFR

PATIENT
  Age: 68 Year
  Sex: Male

DRUGS (15)
  1. STALTOR (CERIVASTATIN) [Suspect]
     Indication: HYPERLIPIDAEMIA
     Dosage: SEE IMAGE
     Route: 048
     Dates: start: 19990901, end: 19990301
  2. STALTOR (CERIVASTATIN) [Suspect]
     Indication: HYPERLIPIDAEMIA
     Dosage: SEE IMAGE
     Route: 048
     Dates: start: 19990914, end: 19990922
  3. STALTOR (CERIVASTATIN) [Suspect]
     Indication: HYPERLIPIDAEMIA
     Dosage: SEE IMAGE
     Route: 048
     Dates: start: 19990301
  4. FENOFIBRATE [Concomitant]
  5. BEFIZAL [Concomitant]
  6. MAXEPA [Concomitant]
  7. FONLIPOL [Concomitant]
  8. MEDIATOR [Concomitant]
  9. SERMION [Concomitant]
  10. OLEA EUROPAE [Concomitant]
  11. TOCO [Concomitant]
  12. APRANAX [Concomitant]
  13. ZYLORIC [Concomitant]
  14. ASPIRIN [Concomitant]
  15. AMOXICILLIN [Concomitant]

REACTIONS (13)
  - AREFLEXIA [None]
  - ARTHRALGIA [None]
  - BLOOD CREATINE PHOSPHOKINASE INCREASED [None]
  - BONE PAIN [None]
  - DISEASE RECURRENCE [None]
  - MUSCULOSKELETAL DISCOMFORT [None]
  - MYALGIA [None]
  - NECK PAIN [None]
  - OSTEOARTHRITIS [None]
  - PAIN IN EXTREMITY [None]
  - PERIPHERAL SENSORY NEUROPATHY [None]
  - POLYNEUROPATHY [None]
  - SENSORY DISTURBANCE [None]
